FAERS Safety Report 8155650-6 (Version None)
Quarter: 2012Q1

REPORT INFORMATION
  Report Type: 
  Country: None (occurrence: None)
  Receive Date: 20120222
  Receipt Date: 20120220
  Transmission Date: 20120608
  Serious: No
  Sender: FDA-Public Use
  Company Number: US-PFIZER INC-2012044529

PATIENT
  Sex: Female

DRUGS (5)
  1. LEVOTHYROXINE [Concomitant]
     Indication: THYROID DISORDER
     Dosage: 0.5 MG, DAILY
  2. FLECTOR [Suspect]
     Indication: ARTHRALGIA
     Dosage: UNK
     Dates: start: 20120201
  3. PRILOSEC [Concomitant]
     Indication: GASTRIC DISORDER
     Dosage: 20 MG, DAILY
  4. PRILOSEC [Concomitant]
     Indication: OESOPHAGEAL DISORDER
  5. VERAPAMIL [Concomitant]
     Indication: HYPERTENSION
     Dosage: 240 MG, DAILY

REACTIONS (3)
  - VERTIGO [None]
  - DIZZINESS [None]
  - EXPIRED DRUG ADMINISTERED [None]
